FAERS Safety Report 7738406-5 (Version None)
Quarter: 2011Q3

REPORT INFORMATION
  Report Type: 
  Country: None (occurrence: None)
  Receive Date: 20110908
  Receipt Date: 20110902
  Transmission Date: 20111222
  Serious: Yes (Other)
  Sender: FDA-Public Use
  Company Number: PHHY2011US69642

PATIENT
  Sex: Female

DRUGS (8)
  1. SERTRALINE HYDROCHLORIDE [Concomitant]
  2. ESTRATEST [Concomitant]
  3. GILENYA [Suspect]
     Dosage: 0.5 MG, QD
     Route: 048
  4. LYRICA [Concomitant]
  5. AMBIEN [Concomitant]
  6. GILENYA [Suspect]
     Indication: MULTIPLE SCLEROSIS
     Dosage: 0.5 MG, DAILY
     Route: 048
     Dates: start: 20110725
  7. FAMPRIDINE [Concomitant]
     Dosage: UNK UKN, UNK
  8. TRAZODONE HCL [Concomitant]

REACTIONS (4)
  - UPPER RESPIRATORY TRACT INFECTION [None]
  - NAUSEA [None]
  - COUGH [None]
  - DYSPNOEA [None]
